FAERS Safety Report 8318014-8 (Version None)
Quarter: 2012Q2

REPORT INFORMATION
  Report Type: 
  Country: None (occurrence: None)
  Receive Date: 20120427
  Receipt Date: 20120420
  Transmission Date: 20120825
  Serious: Yes (Other)
  Sender: FDA-Public Use
  Company Number: BR-BAYER-2012-040691

PATIENT
  Age: 17 Year
  Sex: Male

DRUGS (1)
  1. CIPROFLOXACIN HCL [Suspect]
     Route: 042

REACTIONS (2)
  - PARAESTHESIA ORAL [None]
  - RESPIRATORY DEPRESSION [None]
